FAERS Safety Report 23995999 (Version 3)
Quarter: 2024Q3

REPORT INFORMATION
  Report Type: Spontaneous
  Country: US (occurrence: US)
  Receive Date: 20240620
  Receipt Date: 20240927
  Transmission Date: 20241017
  Serious: Yes (Hospitalization)
  Sender: PFIZER
  Company Number: US-PFIZER INC-202400026690

PATIENT
  Age: 51 Year
  Sex: Female

DRUGS (2)
  1. OXBRYTA [Suspect]
     Active Substance: VOXELOTOR
     Dosage: 500MG, 3 TABLETS ONCE DAILY, ORALLY
     Route: 048
     Dates: start: 20201016
  2. OXBRYTA [Suspect]
     Active Substance: VOXELOTOR
     Dosage: 500MG, 3 TABLETS ONCE DAILY, ORALLY
     Route: 048
     Dates: start: 2020

REACTIONS (2)
  - Sickle cell anaemia with crisis [Unknown]
  - Product dose omission in error [Unknown]
